FAERS Safety Report 13547860 (Version 1)
Quarter: 2017Q2

REPORT INFORMATION
  Report Type: Spontaneous
  Country: NO (occurrence: NO)
  Receive Date: 20170516
  Receipt Date: 20170516
  Transmission Date: 20170830
  Serious: Yes (Hospitalization)
  Sender: FDA-Public Use
  Company Number: NO-ROCHE-1912205

PATIENT
  Sex: Female

DRUGS (2)
  1. MABTHERA [Suspect]
     Active Substance: RITUXIMAB
     Route: 042
     Dates: start: 201609
  2. MABTHERA [Suspect]
     Active Substance: RITUXIMAB
     Indication: POST VIRAL FATIGUE SYNDROME
     Route: 042
     Dates: start: 2016, end: 201612

REACTIONS (4)
  - Eosinophilic cellulitis [Recovered/Resolved]
  - Eczema [Unknown]
  - Psoriasis [Unknown]
  - Off label use [Unknown]
